FAERS Safety Report 24311385 (Version 2)
Quarter: 2024Q4

REPORT INFORMATION
  Report Type: Other
  Country: IN (occurrence: IN)
  Receive Date: 20240912
  Receipt Date: 20241009
  Transmission Date: 20250115
  Serious: Yes (Death, Other)
  Sender: LUPIN
  Company Number: IN-LUPIN HEALTHCARE (UK) LIMITED-2024-08828

PATIENT

DRUGS (4)
  1. TIOTROPIUM BROMIDE [Suspect]
     Active Substance: TIOTROPIUM BROMIDE
     Indication: Product used for unknown indication
     Dosage: UNK UNK, QD (ONE DPI INHALED ONCE DAILY)
     Dates: start: 20230104
  2. BUDESONIDE\FORMOTEROL FUMARATE DIHYDRATE [Suspect]
     Active Substance: BUDESONIDE\FORMOTEROL FUMARATE DIHYDRATE
     Indication: Product used for unknown indication
     Dosage: UNK
     Route: 065
     Dates: start: 20230104
  3. DOXOFYLLINE\MONTELUKAST SODIUM [Suspect]
     Active Substance: DOXOFYLLINE\MONTELUKAST SODIUM
     Indication: Product used for unknown indication
     Dosage: UNK
     Route: 065
     Dates: start: 20230104
  4. AMBROXOL\LEVOCETIRIZINE\MONTELUKAST [Suspect]
     Active Substance: AMBROXOL\LEVOCETIRIZINE\MONTELUKAST
     Indication: Product used for unknown indication
     Dosage: UNK
     Route: 065
     Dates: start: 20230104

REACTIONS (1)
  - Death [Fatal]
